FAERS Safety Report 8249651-7 (Version None)
Quarter: 2012Q2

REPORT INFORMATION
  Report Type: 
  Country: None (occurrence: None)
  Receive Date: 20120402
  Receipt Date: 20120328
  Transmission Date: 20120825
  Serious: Yes (Life-Threatening, Other)
  Sender: FDA-Public Use
  Company Number: US-PURDUE-USA-2012-0084261

PATIENT
  Sex: Female

DRUGS (6)
  1. TOPAMAX [Suspect]
     Indication: HEADACHE
     Dosage: 100 MG, BID
     Route: 048
  2. BUTRANS [Suspect]
     Indication: PAIN
     Dosage: 10 MCG/HR, UNK
     Route: 062
     Dates: start: 20120228, end: 20120306
  3. BUTRANS [Suspect]
     Dosage: 5 MCG/HR, UNK
     Route: 062
     Dates: start: 20120131, end: 20120227
  4. KLONOPIN [Suspect]
     Indication: ANXIETY
     Dosage: 1 MG, UNK
     Route: 048
     Dates: end: 20120301
  5. ZANAFLEX [Suspect]
     Indication: MUSCLE RELAXANT THERAPY
     Dosage: 2 MG, TID
     Route: 048
  6. PERCOCET [Suspect]
     Indication: PAIN
     Dosage: UNK UNK, Q12H
     Route: 048

REACTIONS (2)
  - RESPIRATORY DISTRESS [None]
  - RESPIRATORY ARREST [None]
